FAERS Safety Report 18195150 (Version 2)
Quarter: 2020Q3

REPORT INFORMATION
  Report Type: Spontaneous
  Country: PT (occurrence: PT)
  Receive Date: 20200825
  Receipt Date: 20200914
  Transmission Date: 20201103
  Serious: Yes (Other)
  Sender: FDA-Public Use
  Company Number: PT-CIRCASSIA PHARMACEUTICALS INC-2020PT004637

PATIENT

DRUGS (2)
  1. SPIOLTO RESPIMAT [Suspect]
     Active Substance: OLODATEROL HYDROCHLORIDE\TIOTROPIUM BROMIDE MONOHYDRATE
     Indication: CHRONIC OBSTRUCTIVE PULMONARY DISEASE
     Dosage: 2 DF, DAILY
     Route: 055
     Dates: start: 20200710, end: 20200710
  2. BRIMICA [Suspect]
     Active Substance: ACLIDINIUM BROMIDE\FORMOTEROL FUMARATE
     Indication: CHRONIC OBSTRUCTIVE PULMONARY DISEASE
     Dosage: 2 DF, DAILY
     Route: 055
     Dates: start: 20200414, end: 20200414

REACTIONS (2)
  - Face oedema [Unknown]
  - Erythema [Unknown]

NARRATIVE: CASE EVENT DATE: 20200414
